FAERS Safety Report 20911494 (Version 2)
Quarter: 2022Q2

REPORT INFORMATION
  Report Type: Report from Study
  Country: CN (occurrence: CN)
  Receive Date: 20220603
  Receipt Date: 20220616
  Transmission Date: 20220721
  Serious: Yes (Hospitalization)
  Sender: FDA-Public Use
  Company Number: CN-ADC THERAPEUTICS SA-ADC-2022-000094

PATIENT
  Age: 69 Year
  Sex: Male

DRUGS (1)
  1. LONCASTUXIMAB TESIRINE [Suspect]
     Active Substance: LONCASTUXIMAB TESIRINE
     Indication: Diffuse large B-cell lymphoma
     Dosage: 150 MICROGRAM/KILOGRAM, Q3WK
     Route: 042
     Dates: start: 20220507, end: 20220507

REACTIONS (1)
  - Thrombocytopenia [Recovered/Resolved]

NARRATIVE: CASE EVENT DATE: 20220520
